FAERS Safety Report 15214863 (Version 2)
Quarter: 2018Q3

REPORT INFORMATION
  Report Type: Spontaneous
  Country: JP (occurrence: JP)
  Receive Date: 20180730
  Receipt Date: 20180808
  Transmission Date: 20181010
  Serious: Yes (Other)
  Sender: FDA-Public Use
  Company Number: JP-PFIZER INC-2018304584

PATIENT
  Age: 70 Year
  Sex: Male

DRUGS (2)
  1. MAINTATE [Suspect]
     Active Substance: BISOPROLOL FUMARATE
     Dosage: UNK
     Route: 048
     Dates: start: 200803, end: 201612
  2. CONAN [Suspect]
     Active Substance: QUINAPRIL HYDROCHLORIDE
     Dosage: UNK
     Route: 048
     Dates: start: 200803, end: 201612

REACTIONS (1)
  - Blood creatine phosphokinase increased [Unknown]
